FAERS Safety Report 9801507 (Version 1)
Quarter: 2014Q1

REPORT INFORMATION
  Report Type: Spontaneous
  Country: FR (occurrence: US)
  Receive Date: 20140107
  Receipt Date: 20140107
  Transmission Date: 20141002
  Serious: No
  Sender: FDA-Public Use
  Company Number: FR-GILEAD-2010-0033013

PATIENT
  Age: 54 Year
  Sex: Male

DRUGS (3)
  1. RANEXA [Suspect]
     Indication: ANGINA PECTORIS
     Dates: start: 20100907
  2. ALFUZOSIN [Concomitant]
  3. NITROGLYCERINE [Concomitant]

REACTIONS (1)
  - Drug interaction [Unknown]
